FAERS Safety Report 19978848 (Version 1)
Quarter: 2021Q4

REPORT INFORMATION
  Report Type: Spontaneous
  Country: US (occurrence: US)
  Receive Date: 20211021
  Receipt Date: 20211021
  Transmission Date: 20220303
  Serious: Yes (Other)
  Sender: FDA-Public Use
  Company Number: None

PATIENT
  Age: 55 Year
  Sex: Female
  Weight: 89.55 kg

DRUGS (1)
  1. REGEN-COV [Suspect]
     Active Substance: CASIRIVIMAB\IMDEVIMAB
     Indication: COVID-19 treatment

REACTIONS (5)
  - Tongue pruritus [None]
  - Throat irritation [None]
  - Lip pruritus [None]
  - Oral pruritus [None]
  - Infusion related reaction [None]

NARRATIVE: CASE EVENT DATE: 20211021
